FAERS Safety Report 24769936 (Version 1)
Quarter: 2024Q4

REPORT INFORMATION
  Report Type: Spontaneous
  Country: US (occurrence: US)
  Receive Date: 20241224
  Receipt Date: 20241224
  Transmission Date: 20250115
  Serious: No
  Sender: Haleon PLC
  Company Number: US-HALEON-2217178

PATIENT
  Age: 67 Year
  Sex: Male

DRUGS (1)
  1. NICORETTE WHITE ICE MINT [Suspect]
     Active Substance: NICOTINE
     Indication: Smoking cessation therapy
     Dosage: 1 - LOZENGE (LOZ)
     Dates: start: 20241104, end: 20241107

REACTIONS (4)
  - Burning sensation [Recovered/Resolved]
  - Product complaint [Unknown]
  - Pain in extremity [Recovered/Resolved]
  - Suspected counterfeit product [Unknown]

NARRATIVE: CASE EVENT DATE: 20241106
